FAERS Safety Report 25972811 (Version 1)
Quarter: 2025Q4

REPORT INFORMATION
  Report Type: Spontaneous
  Country: US (occurrence: None)
  Receive Date: 20251029
  Receipt Date: 20251029
  Transmission Date: 20260118
  Serious: No
  Sender: UCB
  Company Number: US-UCBSA-2025047136

PATIENT
  Age: 58 Year

DRUGS (1)
  1. BIMZELX [Suspect]
     Active Substance: BIMEKIZUMAB-BKZX
     Indication: Product used for unknown indication
     Dosage: 160 MILLIGRAM, EV 4 WEEKS

REACTIONS (7)
  - Headache [Unknown]
  - Malaise [Unknown]
  - Nail discolouration [Unknown]
  - Alopecia [Unknown]
  - Blood glucose increased [Unknown]
  - Aggression [Unknown]
  - Bone loss [Unknown]
